FAERS Safety Report 14745948 (Version 1)
Quarter: 2018Q2

REPORT INFORMATION
  Report Type: Spontaneous
  Country: JP (occurrence: JP)
  Receive Date: 20180411
  Receipt Date: 20180411
  Transmission Date: 20180711
  Serious: Yes (Other)
  Sender: FDA-Public Use
  Company Number: JP-GLAXOSMITHKLINE-JP2018JPN059625

PATIENT
  Sex: Male

DRUGS (3)
  1. AVOLVE [Suspect]
     Active Substance: DUTASTERIDE
     Dosage: UNK
     Route: 048
  2. HOCHU-EKKI-TO [Concomitant]
     Active Substance: UNSPECIFIED INGREDIENT
     Dosage: UNK
  3. URIEF [Concomitant]
     Active Substance: SILODOSIN
     Dosage: UNK

REACTIONS (1)
  - Hyperkalaemia [Unknown]
